FAERS Safety Report 6608810-7 (Version None)
Quarter: 2010Q1

REPORT INFORMATION
  Report Type: 
  Country: None (occurrence: None)
  Receive Date: 20100226
  Receipt Date: 20100226
  Transmission Date: 20100710
  Serious: Yes (Other)
  Sender: FDA-Public Use
  Company Number: None

PATIENT
  Age: 57 Year
  Sex: Female
  Weight: 65.7716 kg

DRUGS (1)
  1. IBUPROFEN (ADVIL) [Suspect]
     Indication: TOOTHACHE
     Dosage: 2 WHEN NEEDED DENTAL
     Route: 004
     Dates: start: 20100111, end: 20100207

REACTIONS (1)
  - ANGER [None]
